FAERS Safety Report 6006696-5 (Version None)
Quarter: 2008Q4

REPORT INFORMATION
  Report Type: 
  Country: None (occurrence: None)
  Receive Date: 20081217
  Receipt Date: 20081210
  Transmission Date: 20090506
  Serious: Yes (Death)
  Sender: FDA-Public Use
  Company Number: US-ELI_LILLY_AND_COMPANY-US200812003042

PATIENT
  Sex: Female

DRUGS (3)
  1. PROZAC [Suspect]
     Dosage: UNK, UNKNOWN
     Route: 048
  2. TRAZODONE HCL [Concomitant]
     Dosage: 50 MG, UNKNOWN
     Route: 048
  3. XANAX [Concomitant]
     Dosage: UNK, UNKNOWN
     Route: 048

REACTIONS (2)
  - REFLEXES ABNORMAL [None]
  - ROAD TRAFFIC ACCIDENT [None]
